FAERS Safety Report 17520279 (Version 4)
Quarter: 2020Q4

REPORT INFORMATION
  Report Type: Spontaneous
  Country: IT (occurrence: IT)
  Receive Date: 20200309
  Receipt Date: 20201120
  Transmission Date: 20210113
  Serious: No
  Sender: FDA-Public Use
  Company Number: IT-AMGEN-ITASP2020037881

PATIENT
  Age: 63 Year
  Sex: Female

DRUGS (5)
  1. METHOTREXATE SODIUM. [Suspect]
     Active Substance: METHOTREXATE SODIUM
     Indication: PRODUCT USED FOR UNKNOWN INDICATION
     Dosage: 10 MILLIGRAM, QWK
     Route: 065
  2. TRUXIMA [Suspect]
     Active Substance: RITUXIMAB-ABBS
     Indication: CRYOGLOBULINAEMIA
     Dosage: 1000 MILLIGRAM, (EVERY OTHER WEEK)
     Route: 065
  3. TRUXIMA [Suspect]
     Active Substance: RITUXIMAB-ABBS
     Indication: RHEUMATOID ARTHRITIS
     Dosage: UNK
     Route: 065
  4. ENBREL [Suspect]
     Active Substance: ETANERCEPT
     Indication: PRODUCT USED FOR UNKNOWN INDICATION
     Dosage: 50 MILLIGRAM, QWK
     Route: 065
  5. PARACETAMOL [Concomitant]
     Active Substance: ACETAMINOPHEN
     Indication: PREMEDICATION
     Dosage: UNK

REACTIONS (1)
  - Drug ineffective [Unknown]
